FAERS Safety Report 9253822 (Version 4)
Quarter: 2013Q4

REPORT INFORMATION
  Report Type: Spontaneous
  Country: US (occurrence: None)
  Receive Date: 20130419
  Receipt Date: 20131028
  Transmission Date: 20140711
  Serious: Yes (Hospitalization)
  Sender: FDA-Public Use
  Company Number: ACO_35478_2013

PATIENT
  Age: 70 Year
  Sex: Female
  Weight: 59 kg

DRUGS (6)
  1. AMPYRA (DALFAMPRIDINE) TABLET, 10MG [Suspect]
     Indication: GAIT DISTURBANCE
     Route: 048
     Dates: start: 201012
  2. LEVOXYL (LEVOTHYROXINE SODIUM) [Concomitant]
  3. ALL OTHER THERAPEUTIC PRODUCTS [Concomitant]
  4. VITAMINS [Concomitant]
  5. MULTIVITAMIN (VITAMINS  NOS) [Concomitant]
  6. CALCIUM (CALCIUM) [Concomitant]

REACTIONS (6)
  - Fall [None]
  - Gait disturbance [None]
  - Hip fracture [None]
  - Coordination abnormal [None]
  - Therapeutic response unexpected [None]
  - Balance disorder [None]
